FAERS Safety Report 14838180 (Version 1)
Quarter: 2018Q2

REPORT INFORMATION
  Report Type: Spontaneous
  Country: US (occurrence: US)
  Receive Date: 20180418
  Receipt Date: 20180418
  Transmission Date: 20180711
  Serious: Yes (Hospitalization)
  Sender: FDA-Public Use
  Company Number: None

PATIENT
  Age: 18 Year
  Sex: Male
  Weight: 100.2 kg

DRUGS (6)
  1. DOXORUBICIN HYDROCHLORIDE. [Suspect]
     Active Substance: DOXORUBICIN HYDROCHLORIDE
     Dates: end: 20180409
  2. METHOTREXATE. [Suspect]
     Active Substance: METHOTREXATE
     Dates: end: 20180326
  3. DEXAMETHASONE. [Suspect]
     Active Substance: DEXAMETHASONE
     Dates: end: 20180414
  4. GLEEVEC [Suspect]
     Active Substance: IMATINIB MESYLATE
     Dates: end: 20180414
  5. VINCRISTINE SULFATE. [Suspect]
     Active Substance: VINCRISTINE SULFATE
     Dates: end: 20180409
  6. ONCASPAR [Suspect]
     Active Substance: PEGASPARGASE
     Dates: end: 20180329

REACTIONS (19)
  - Urine output decreased [None]
  - Abdominal rigidity [None]
  - Ascites [None]
  - Vomiting [None]
  - Pancreatitis [None]
  - Mental impairment [None]
  - Pallor [None]
  - Hepatic steatosis [None]
  - Abdominal pain [None]
  - General physical health deterioration [None]
  - Pancreatitis necrotising [None]
  - Acute kidney injury [None]
  - Tachycardia [None]
  - Fatigue [None]
  - Abdominal rebound tenderness [None]
  - Flatulence [None]
  - Tachypnoea [None]
  - Lung hypoinflation [None]
  - Pancreatitis haemorrhagic [None]

NARRATIVE: CASE EVENT DATE: 20180416
